FAERS Safety Report 5626947-6 (Version None)
Quarter: 2008Q1

REPORT INFORMATION
  Report Type: 
  Country: None (occurrence: None)
  Receive Date: 20080212
  Receipt Date: 20071212
  Transmission Date: 20080703
  Serious: Yes (Other)
  Sender: FDA-Public Use
  Company Number: MK-6036813

PATIENT
  Age: 25 Year
  Sex: Female
  Weight: 62.1428 kg

DRUGS (3)
  1. AMNESTEEM [Suspect]
     Indication: DRUG USE FOR UNKNOWN INDICATION
     Dosage: 40 MG;TWICW A DAY
     Dates: start: 20070619, end: 20070713
  2. AMNESTEEM [Suspect]
     Indication: DRUG USE FOR UNKNOWN INDICATION
     Dosage: 30 MG;DAILY
     Dates: start: 20070413, end: 20070513
  3. YASMIN (PREV.) [Concomitant]

REACTIONS (3)
  - DRUG EXPOSURE DURING PREGNANCY [None]
  - MIGRAINE [None]
  - PREGNANCY [None]
